FAERS Safety Report 8833025 (Version 1)
Quarter: 2012Q4

REPORT INFORMATION
  Report Type: 
  Country: BR (occurrence: BR)
  Receive Date: 20121010
  Receipt Date: 20121010
  Transmission Date: 20130627
  Serious: Yes (Other)
  Sender: FDA-Public Use
  Company Number: BR-PFIZER INC-2012250446

PATIENT
  Sex: Male

DRUGS (1)
  1. GEODON [Suspect]
     Indication: MENTAL DISORDER
     Dosage: 80 mg, 1x/day
     Route: 048
     Dates: start: 2006

REACTIONS (2)
  - Drug dependence [Unknown]
  - Drug ineffective [Unknown]
